FAERS Safety Report 14138106 (Version 1)
Quarter: 2017Q4

REPORT INFORMATION
  Report Type: Spontaneous
  Country: DK (occurrence: DK)
  Receive Date: 20171027
  Receipt Date: 20171027
  Transmission Date: 20180321
  Serious: Yes (Hospitalization)
  Sender: FDA-Public Use
  Company Number: DK-TEVA-817878ROM

PATIENT
  Age: 64 Year
  Sex: Female

DRUGS (11)
  1. METHADON ^ALTERNOVA^ [Suspect]
     Active Substance: METHADONE HYDROCHLORIDE
     Indication: PAIN
     Dosage: STRENGTH: 5 MG.
     Route: 048
     Dates: start: 201706
  2. BAKLOFEN ^MYLAN^ [Suspect]
     Active Substance: BACLOFEN
     Indication: MUSCLE RELAXANT THERAPY
     Dosage: STRENGTH: 10 MG.
     Route: 048
     Dates: start: 20170519
  3. CLARITHROMYCIN TEVA [Suspect]
     Active Substance: CLARITHROMYCIN
     Indication: PNEUMONIA
     Dosage: STRENGHT: 250 MG
     Route: 048
     Dates: start: 20170721, end: 20170726
  4. OXYCODON HYDROCHLORID ACTAVIS [Suspect]
     Active Substance: OXYCODONE HYDROCHLORIDE
     Indication: PAIN
     Dosage: 3 TABLETS IN THE MORNING, 3 TABLETS IN THE EVENING AND 2 TABLETS BEFORE BEDTIME. STRENGHT: 10 MG
     Route: 048
     Dates: start: 20131028
  5. KLORZOXAZON ^DAK^ [Suspect]
     Active Substance: CHLORZOXAZONE
     Indication: MUSCLE RELAXANT THERAPY
     Dosage: STRENGHT: 250 MG.
     Route: 048
     Dates: start: 20161118
  6. TAFIL RETARD [Suspect]
     Active Substance: ALPRAZOLAM
     Indication: ANXIETY DISORDER
     Dosage: STRENGHT: 1 MG.
     Route: 048
     Dates: start: 20160430
  7. MIRTAZAPIN ^HEXAL^ [Suspect]
     Active Substance: MIRTAZAPINE
     Indication: DEPRESSION
     Dosage: DOSAGE: 2 TABLETS BEFORE BEDTIME. STRENGTH: 15 MG
     Route: 048
     Dates: start: 20160430
  8. EUTHYROX [Concomitant]
     Active Substance: LEVOTHYROXINE SODIUM
     Indication: HYPOTHYROIDISM
     Dosage: DOSAGE: 125 MICROGRAMS IN THE MORNING. STRENGTH: 100 MICROGRAMS + 25 MICROGRAMS
     Route: 048
     Dates: start: 20140427
  9. MEDILAX [Concomitant]
     Indication: CONSTIPATION
     Dosage: STRENGTH: 667 MG/ML.
     Route: 048
     Dates: start: 20160509
  10. PINEX [Concomitant]
     Active Substance: ACETAMINOPHEN
     Indication: PAIN
     Dosage: DOSAGE: 2 TABLETS AS NEEDED. MAXIMUM 4 TIMES A DAY. STRENGTH: 500 MG.
     Route: 048
     Dates: start: 20140804
  11. QUETIAPIN ^SANDOZ^ [Suspect]
     Active Substance: QUETIAPINE
     Indication: DEPRESSION
     Dosage: DOSAGE: 1 TABLET IN THE MORNING, 1 TABLET AFTERNOON, 3 TABLETS BEFORE BEDTIME. STRENGTH: 25 MG.
     Route: 048
     Dates: start: 20160506

REACTIONS (3)
  - Accidental overdose [Recovered/Resolved]
  - Respiratory depression [Recovered/Resolved]
  - Loss of consciousness [Recovered/Resolved]

NARRATIVE: CASE EVENT DATE: 20170708
